FAERS Safety Report 24801094 (Version 2)
Quarter: 2025Q1

REPORT INFORMATION
  Report Type: Spontaneous
  Country: DE (occurrence: DE)
  Receive Date: 20250102
  Receipt Date: 20250117
  Transmission Date: 20250408
  Serious: Yes (Hospitalization, Other)
  Sender: ALEXION PHARMACEUTICALS
  Company Number: DE-AMGEN-DEUSP2024249875

PATIENT
  Age: 71 Year

DRUGS (30)
  1. FULVESTRANT [Suspect]
     Active Substance: FULVESTRANT
     Indication: Breast cancer
  2. FULVESTRANT [Suspect]
     Active Substance: FULVESTRANT
     Route: 030
  3. FULVESTRANT [Suspect]
     Active Substance: FULVESTRANT
  4. FULVESTRANT [Suspect]
     Active Substance: FULVESTRANT
     Route: 030
  5. XGEVA [Suspect]
     Active Substance: DENOSUMAB
     Indication: Prophylaxis
  6. XGEVA [Suspect]
     Active Substance: DENOSUMAB
     Route: 058
  7. XGEVA [Suspect]
     Active Substance: DENOSUMAB
  8. XGEVA [Suspect]
     Active Substance: DENOSUMAB
     Route: 058
  9. XGEVA [Suspect]
     Active Substance: DENOSUMAB
  10. XGEVA [Suspect]
     Active Substance: DENOSUMAB
     Route: 042
  11. XGEVA [Suspect]
     Active Substance: DENOSUMAB
  12. XGEVA [Suspect]
     Active Substance: DENOSUMAB
     Route: 042
  13. XGEVA [Suspect]
     Active Substance: DENOSUMAB
  14. XGEVA [Suspect]
     Active Substance: DENOSUMAB
     Route: 042
  15. XGEVA [Suspect]
     Active Substance: DENOSUMAB
  16. XGEVA [Suspect]
     Active Substance: DENOSUMAB
     Route: 042
  17. PALBOCICLIB [Suspect]
     Active Substance: PALBOCICLIB
     Indication: Breast cancer
     Dosage: 125 MILLIGRAM, QD (FROM DAY 1 TO DAY 21 EVERY 28-DAY CYCLE)
     Route: 048
  18. PALBOCICLIB [Suspect]
     Active Substance: PALBOCICLIB
     Dosage: 125 MILLIGRAM, QD (FROM DAY 1 TO DAY 21 EVERY 28-DAY CYCLE)
  19. ASPIRIN [Concomitant]
     Active Substance: ASPIRIN
     Indication: Prophylaxis
     Route: 048
  20. ASPIRIN [Concomitant]
     Active Substance: ASPIRIN
  21. CHOLECALCIFEROL [Concomitant]
     Active Substance: CHOLECALCIFEROL
     Indication: Prophylaxis
     Route: 048
  22. CHOLECALCIFEROL [Concomitant]
     Active Substance: CHOLECALCIFEROL
  23. LEVOTHYROXINE SODIUM [Concomitant]
     Active Substance: LEVOTHYROXINE SODIUM
     Indication: Hypothyroidism
     Route: 048
  24. LEVOTHYROXINE SODIUM [Concomitant]
     Active Substance: LEVOTHYROXINE SODIUM
  25. VALSARTAN [Concomitant]
     Active Substance: VALSARTAN
     Indication: Essential hypertension
     Route: 048
  26. VALSARTAN [Concomitant]
     Active Substance: VALSARTAN
  27. ROSUVASTATIN [Concomitant]
     Active Substance: ROSUVASTATIN
     Indication: Hyperchloraemia
     Route: 048
  28. ROSUVASTATIN [Concomitant]
     Active Substance: ROSUVASTATIN
  29. HELIXOR [Concomitant]
     Indication: Prophylaxis
     Route: 058
  30. HELIXOR [Concomitant]

REACTIONS (2)
  - Osteonecrosis of jaw [Recovered/Resolved]
  - Incorrect route of product administration [Unknown]
